FAERS Safety Report 15199637 (Version 1)
Quarter: 2018Q3

REPORT INFORMATION
  Report Type: Spontaneous
  Country: GR (occurrence: GR)
  Receive Date: 20180725
  Receipt Date: 20180725
  Transmission Date: 20181010
  Serious: Yes (Death, Life-Threatening, Hospitalization)
  Sender: FDA-Public Use
  Company Number: GR-BAXTER-2018BAX019850

PATIENT
  Age: 24 Year
  Sex: Male

DRUGS (13)
  1. METRONIDAZOLE/BAXTER SOLUTION FOR INTRAVENOUS INFUSION 500 MG/100 ML [Suspect]
     Active Substance: METRONIDAZOLE\SODIUM CHLORIDE
     Indication: INFECTIOUS MONONUCLEOSIS
     Route: 065
  2. ALBUMINE [Suspect]
     Active Substance: ALBUMIN HUMAN
     Indication: INFECTIOUS MONONUCLEOSIS
  3. METHYLPREDNISOLONE. [Suspect]
     Active Substance: METHYLPREDNISOLONE
     Indication: INFECTIOUS MONONUCLEOSIS
     Dosage: UNK
     Route: 065
  4. METHYLPREDNISOLONE. [Suspect]
     Active Substance: METHYLPREDNISOLONE
     Indication: HISTIOCYTOSIS HAEMATOPHAGIC
     Dosage: 2 MG/KG
     Route: 065
  5. MEROPENEM. [Suspect]
     Active Substance: MEROPENEM
     Indication: PRODUCT USED FOR UNKNOWN INDICATION
     Route: 065
  6. TEICOPLANIN [Suspect]
     Active Substance: TEICOPLANIN
     Indication: INFECTIOUS MONONUCLEOSIS
     Route: 065
  7. DEXAMETHASONE. [Suspect]
     Active Substance: DEXAMETHASONE
     Indication: INFECTIOUS MONONUCLEOSIS
     Dosage: DEXAMETHASONE SALT NOT SPECIFIED
     Route: 041
  8. ALBUMINE [Suspect]
     Active Substance: ALBUMIN HUMAN
     Indication: HISTIOCYTOSIS HAEMATOPHAGIC
     Route: 065
  9. DEXAMETHASONE. [Suspect]
     Active Substance: DEXAMETHASONE
     Indication: HISTIOCYTOSIS HAEMATOPHAGIC
  10. ETOPOSIDE. [Suspect]
     Active Substance: ETOPOSIDE
     Indication: INFECTIOUS MONONUCLEOSIS
     Route: 065
  11. GANCICLOVIR. [Suspect]
     Active Substance: GANCICLOVIR
     Indication: INFECTIOUS MONONUCLEOSIS
     Route: 065
  12. ACICLOVIR [Suspect]
     Active Substance: ACYCLOVIR
     Indication: INFECTIOUS MONONUCLEOSIS
     Route: 065
  13. RIFAXIMIN. [Suspect]
     Active Substance: RIFAXIMIN
     Indication: INFECTIOUS MONONUCLEOSIS
     Route: 065

REACTIONS (2)
  - Drug ineffective [Fatal]
  - Histiocytosis haematophagic [None]
